FAERS Safety Report 13079640 (Version 3)
Quarter: 2017Q1

REPORT INFORMATION
  Report Type: Report from Study
  Country: US (occurrence: US)
  Receive Date: 20170103
  Receipt Date: 20170302
  Transmission Date: 20170428
  Serious: Yes (Hospitalization)
  Sender: FDA-Public Use
  Company Number: US-GILEAD-2016-0249007

PATIENT
  Age: 89 Year
  Sex: Female

DRUGS (2)
  1. AMBRISENTAN [Suspect]
     Active Substance: AMBRISENTAN
     Indication: PRODUCT USED FOR UNKNOWN INDICATION
     Dosage: 10 MG, UNK
     Route: 065
     Dates: start: 20161208
  2. WARFARIN [Concomitant]
     Active Substance: WARFARIN

REACTIONS (9)
  - Speech disorder [Unknown]
  - Peripheral swelling [Unknown]
  - Oxygen saturation decreased [Recovered/Resolved]
  - Fluid retention [Unknown]
  - Decreased appetite [Unknown]
  - Hypersomnia [Unknown]
  - Unevaluable event [Unknown]
  - Balance disorder [Unknown]
  - Fatigue [Unknown]
